FAERS Safety Report 12658940 (Version 1)
Quarter: 2016Q3

REPORT INFORMATION
  Report Type: Spontaneous
  Country: US (occurrence: None)
  Receive Date: 20160816
  Receipt Date: 20160816
  Transmission Date: 20161109
  Serious: Yes (Life-Threatening, Hospitalization)
  Sender: FDA-Public Use
  Company Number: None

PATIENT
  Age: 70 Year
  Sex: Male
  Weight: 98.43 kg

DRUGS (17)
  1. HYDRALAZINE [Concomitant]
     Active Substance: HYDRALAZINE HYDROCHLORIDE
  2. METHYL [Concomitant]
  3. GLIMEPIRIDE. [Concomitant]
     Active Substance: GLIMEPIRIDE
  4. ALBUTEROL. [Concomitant]
     Active Substance: ALBUTEROL
  5. COLACE [Concomitant]
     Active Substance: DOCUSATE SODIUM
  6. SYMBICORT [Concomitant]
     Active Substance: BUDESONIDE\FORMOTEROL FUMARATE DIHYDRATE
  7. LISINOPRIL 2.5MG TABS [Suspect]
     Active Substance: LISINOPRIL
     Indication: RENAL FAILURE
     Route: 048
     Dates: start: 20160708, end: 20160726
  8. PRINIVIL [Suspect]
     Active Substance: LISINOPRIL
  9. ALPRAZOLAM. [Concomitant]
     Active Substance: ALPRAZOLAM
  10. ZESTRIL [Suspect]
     Active Substance: LISINOPRIL
  11. VITAMIN B12 [Concomitant]
     Active Substance: CYANOCOBALAMIN
  12. ASPIRIN. [Concomitant]
     Active Substance: ASPIRIN
  13. VENLAFAXINE [Concomitant]
     Active Substance: VENLAFAXINE HYDROCHLORIDE
  14. ROPINIROLE. [Concomitant]
     Active Substance: ROPINIROLE
  15. ALBUTEROL - IPRATROPIUM [Concomitant]
  16. FLUTICASONE NASAL [Concomitant]
     Active Substance: FLUTICASONE\FLUTICASONE PROPIONATE
  17. FUROSEMIDE. [Concomitant]
     Active Substance: FUROSEMIDE

REACTIONS (3)
  - Drug hypersensitivity [None]
  - Fluid intake reduced [None]
  - Feeding disorder [None]

NARRATIVE: CASE EVENT DATE: 20160726
